FAERS Safety Report 6037951-0 (Version None)
Quarter: 2009Q1

REPORT INFORMATION
  Report Type: 
  Country: None (occurrence: None)
  Receive Date: 20090115
  Receipt Date: 20090107
  Transmission Date: 20090719
  Serious: Yes (Other)
  Sender: FDA-Public Use
  Company Number: CH-AMGEN-US327663

PATIENT
  Age: 41 Year
  Sex: Female

DRUGS (3)
  1. ENBREL [Suspect]
     Indication: PSORIATIC ARTHROPATHY
     Route: 058
     Dates: start: 20080101
  2. DAFALGAN [Concomitant]
     Route: 065
  3. MEFENAMIC ACID [Concomitant]
     Dosage: 500 MG, FREQUENCY UNKNOWN
     Route: 065

REACTIONS (2)
  - JOINT SWELLING [None]
  - POLYARTHRITIS [None]
